FAERS Safety Report 9250013 (Version 3)
Quarter: 2014Q1

REPORT INFORMATION
  Report Type: Spontaneous
  Country: US (occurrence: US)
  Receive Date: 20130424
  Receipt Date: 20140103
  Transmission Date: 20141002
  Serious: Yes (Hospitalization, Other)
  Sender: FDA-Public Use
  Company Number: US-ASTRAZENECA-2013SE27295

PATIENT
  Age: 67 Year
  Sex: Female
  Weight: 94.8 kg

DRUGS (18)
  1. NEXIUM [Suspect]
     Indication: GASTROOESOPHAGEAL REFLUX DISEASE
     Route: 048
     Dates: start: 2001, end: 20100213
  2. NEXIUM [Suspect]
     Indication: GASTROOESOPHAGEAL REFLUX DISEASE
     Route: 048
     Dates: start: 20060623
  3. NEXIUM [Suspect]
     Indication: GASTROOESOPHAGEAL REFLUX DISEASE
     Route: 048
     Dates: start: 20100223
  4. ZANTAC [Concomitant]
     Indication: GASTROOESOPHAGEAL REFLUX DISEASE
     Dosage: AS NEEDED
     Dates: start: 2009, end: 2013
  5. GAVISCON [Concomitant]
     Indication: GASTROOESOPHAGEAL REFLUX DISEASE
     Dosage: 1-2 TIMES DAILY
     Dates: start: 1983
  6. TUMS [Concomitant]
     Indication: GASTROOESOPHAGEAL REFLUX DISEASE
     Dosage: 1- 2 AS NEEDED
  7. MYLANTA [Concomitant]
     Indication: GASTROOESOPHAGEAL REFLUX DISEASE
     Dosage: 1- 2 AS NEEDED
  8. PEPTO BISMOL [Concomitant]
     Indication: ABDOMINAL DISCOMFORT
  9. CARVEDILOL [Concomitant]
     Indication: HEART RATE IRREGULAR
  10. CLONAZEPAM [Concomitant]
     Indication: RESTLESSNESS
  11. ASPIRIN [Concomitant]
     Indication: CARDIAC DISORDER
  12. TRICOR [Concomitant]
     Route: 048
     Dates: start: 20050718
  13. ATACAND [Concomitant]
     Route: 048
     Dates: start: 20060718
  14. ACTOS [Concomitant]
     Route: 048
     Dates: start: 20060718
  15. LEVOXYL [Concomitant]
     Dates: start: 20100223
  16. BUMETANIDE [Concomitant]
     Dates: start: 20100223
  17. PRAVACHOL [Concomitant]
     Dosage: ONE PO QHS
     Dates: start: 201009
  18. SINGULAIR [Concomitant]
     Dosage: 5 MG ONE PO Q DAY
     Dates: start: 201009

REACTIONS (21)
  - Pneumonia [Unknown]
  - Uterine disorder [Unknown]
  - Haemorrhoids [Unknown]
  - Cervical vertebral fracture [Unknown]
  - Convulsion [Unknown]
  - Musculoskeletal discomfort [Unknown]
  - Osteoporosis [Unknown]
  - Bone disorder [Unknown]
  - Foot fracture [Unknown]
  - Asthma [Unknown]
  - Chronic obstructive pulmonary disease [Unknown]
  - Amnesia [Unknown]
  - Road traffic accident [Unknown]
  - Fall [Unknown]
  - Arthritis [Unknown]
  - Cataract [Unknown]
  - Diabetes mellitus [Unknown]
  - Gait disturbance [Unknown]
  - Rib fracture [Unknown]
  - Osteopenia [Unknown]
  - Depression [Unknown]
